FAERS Safety Report 5264593-7 (Version None)
Quarter: 2007Q1

REPORT INFORMATION
  Report Type: 
  Country: None (occurrence: None)
  Receive Date: 20070314
  Receipt Date: 20070228
  Transmission Date: 20070707
  Serious: Yes (Death, Other)
  Sender: FDA-Public Use
  Company Number: CH-BRISTOL-MYERS SQUIBB COMPANY-13695739

PATIENT
  Sex: Male

DRUGS (3)
  1. DOXORUBICIN HCL [Suspect]
     Indication: NON-SMALL CELL LUNG CANCER
     Route: 042
  2. MITOMYCIN [Suspect]
     Indication: NON-SMALL CELL LUNG CANCER
     Route: 042
  3. RADIOTHERAPY [Concomitant]
     Indication: NON-SMALL CELL LUNG CANCER

REACTIONS (3)
  - DEATH [None]
  - GRANULOCYTOPENIA [None]
  - SEPSIS [None]
